FAERS Safety Report 8243172-3 (Version None)
Quarter: 2012Q1

REPORT INFORMATION
  Report Type: 
  Country: None (occurrence: None)
  Receive Date: 20120329
  Receipt Date: 20120322
  Transmission Date: 20120608
  Serious: Yes (Disabling, Other)
  Sender: FDA-Public Use
  Company Number: GB-NOVOPROD-347851

PATIENT
  Age: 52 Year
  Sex: Female
  Weight: 133 kg

DRUGS (7)
  1. AMLODIPINE [Concomitant]
     Indication: BLOOD PRESSURE ABNORMAL
     Dosage: 10 MG, UNK
     Route: 048
     Dates: start: 20070101
  2. LISINOPRIL [Concomitant]
     Indication: BLOOD PRESSURE ABNORMAL
     Dosage: 20 MG, UNK
     Dates: start: 20070101
  3. METFORMIN HCL [Concomitant]
     Dosage: TID
     Dates: start: 20070101
  4. SIMVASTATIN [Concomitant]
     Indication: BLOOD CHOLESTEROL INCREASED
     Dosage: 40 MG, UNK
     Dates: start: 20070101
  5. GLICLAZIDE [Concomitant]
     Dosage: 80 MG, QD
     Dates: start: 20070101
  6. LEVEMIR [Suspect]
     Indication: PRODUCT USED FOR UNKNOWN INDICATION
     Dosage: 68 IU, QD
     Route: 058
     Dates: start: 20111115, end: 20120226
  7. FLUOXETINE [Concomitant]
     Indication: DEPRESSION
     Dosage: 40 MG, QD
     Route: 048
     Dates: start: 20100101

REACTIONS (1)
  - MYALGIA [None]
